FAERS Safety Report 24339810 (Version 8)
Quarter: 2024Q4

REPORT INFORMATION
  Report Type: Spontaneous
  Country: US (occurrence: US)
  Receive Date: 20240919
  Receipt Date: 20241223
  Transmission Date: 20250115
  Serious: Yes (Other)
  Sender: PFIZER
  Company Number: US-PFIZER INC-PV202400122242

PATIENT
  Age: 49 Year
  Sex: Female

DRUGS (3)
  1. LITFULO [Suspect]
     Active Substance: RITLECITINIB TOSYLATE
     Indication: Alopecia areata
     Dosage: 50 MG, DAILY
     Route: 048
     Dates: start: 20240827, end: 2024
  2. LITFULO [Suspect]
     Active Substance: RITLECITINIB TOSYLATE
     Dosage: 50MG TAKE 1 CAPSULE BY MOUTH EVERY DAY
     Route: 048
     Dates: start: 20240827
  3. BENLYSTA [Concomitant]
     Active Substance: BELIMUMAB
     Indication: Alopecia
     Dosage: PEN (4=4)

REACTIONS (10)
  - Dental caries [Unknown]
  - Tooth abscess [Recovering/Resolving]
  - Product dose omission issue [Unknown]
  - Pyrexia [Recovered/Resolved]
  - Neck pain [Unknown]
  - Infection [Unknown]
  - Nausea [Unknown]
  - Illness [Unknown]
  - COVID-19 [Not Recovered/Not Resolved]
  - Discomfort [Unknown]

NARRATIVE: CASE EVENT DATE: 20240101
